FAERS Safety Report 9470622 (Version 1)
Quarter: 2013Q3

REPORT INFORMATION
  Report Type: Spontaneous
  Country: US (occurrence: US)
  Receive Date: 20130822
  Receipt Date: 20130822
  Transmission Date: 20140515
  Serious: No
  Sender: FDA-Public Use
  Company Number: US-PFIZER INC-2013242749

PATIENT
  Age: 79 Year
  Sex: Female
  Weight: 64.85 kg

DRUGS (2)
  1. LYRICA [Suspect]
     Indication: HERPES ZOSTER
     Dosage: ONE CAPSULE OF 75 MG IN MORNING AND TWO CAPSULES OF 75MG IN NIGHT, 2X/DAY
     Route: 048
     Dates: start: 20130601
  2. LYRICA [Suspect]
     Indication: PAIN

REACTIONS (1)
  - Drug ineffective [Unknown]
